FAERS Safety Report 8806925 (Version 3)
Quarter: 2015Q1

REPORT INFORMATION
  Report Type: Report from Study
  Country: US (occurrence: US)
  Receive Date: 20120925
  Receipt Date: 20150330
  Transmission Date: 20150721
  Serious: Yes (Death)
  Sender: FDA-Public Use
  Company Number: US-ROCHE-1124817

PATIENT
  Sex: Male

DRUGS (14)
  1. AVASTIN [Suspect]
     Active Substance: BEVACIZUMAB
     Indication: MALIGNANT MELANOMA
     Route: 042
     Dates: start: 20090814
  2. DECADRON [Concomitant]
     Active Substance: DEXAMETHASONE
     Route: 042
  3. NORVASC [Concomitant]
     Active Substance: AMLODIPINE BESYLATE
  4. DECADRON [Concomitant]
     Active Substance: DEXAMETHASONE
     Route: 042
  5. HEPLOCK [Concomitant]
     Dosage: 500 UNITS
     Route: 065
  6. BENADRYL [Concomitant]
     Active Substance: DIPHENHYDRAMINE HYDROCHLORIDE
     Route: 042
  7. TYLENOL [Concomitant]
     Active Substance: ACETAMINOPHEN
     Route: 048
  8. AVASTIN [Suspect]
     Active Substance: BEVACIZUMAB
     Route: 042
     Dates: start: 20090925
  9. ZOFRAN [Concomitant]
     Active Substance: ONDANSETRON HYDROCHLORIDE
     Route: 065
  10. AVASTIN [Suspect]
     Active Substance: BEVACIZUMAB
     Indication: METASTASES TO LIVER
     Route: 042
     Dates: start: 20090904
  11. TAXOL [Concomitant]
     Active Substance: PACLITAXEL
     Dosage: FOR 3 WEEKS
     Route: 042
  12. ALOXI [Concomitant]
     Active Substance: PALONOSETRON HYDROCHLORIDE
     Route: 042
  13. DECADRON [Concomitant]
     Active Substance: DEXAMETHASONE
     Route: 042
  14. ZANTAC [Concomitant]
     Active Substance: RANITIDINE HYDROCHLORIDE
     Route: 042

REACTIONS (28)
  - Diarrhoea [Recovered/Resolved]
  - Blood pressure increased [Unknown]
  - Weight decreased [Unknown]
  - Musculoskeletal pain [Unknown]
  - Fatigue [Unknown]
  - Hypersomnia [Unknown]
  - Renal cyst [Unknown]
  - Pulmonary granuloma [Unknown]
  - Oedema peripheral [Unknown]
  - Eczema [Unknown]
  - Cerebral small vessel ischaemic disease [Unknown]
  - Lymphadenopathy [Unknown]
  - Arteriosclerosis coronary artery [Unknown]
  - Death [Fatal]
  - Rash [Unknown]
  - Joint swelling [Unknown]
  - Hypoacusis [Recovered/Resolved]
  - Flushing [Unknown]
  - Abdominal discomfort [Unknown]
  - Pericardial effusion [Unknown]
  - Sinusitis [Unknown]
  - Periventricular leukomalacia [Unknown]
  - Cerebral atrophy [Unknown]
  - Coordination abnormal [Unknown]
  - Muscular weakness [Unknown]
  - Insomnia [Unknown]
  - Arteriosclerosis [Unknown]
  - Disease progression [Unknown]
